FAERS Safety Report 20920965 (Version 1)
Quarter: 2022Q2

REPORT INFORMATION
  Report Type: Spontaneous
  Country: US (occurrence: US)
  Receive Date: 20220606
  Receipt Date: 20220606
  Transmission Date: 20220721
  Serious: No
  Sender: FDA-Public Use
  Company Number: US-BAYER-2022A077579

PATIENT

DRUGS (1)
  1. ALEVE [Suspect]
     Active Substance: NAPROXEN SODIUM
     Dosage: I TOOK 1 LAST NIGHT
     Route: 048
     Dates: start: 20220528

REACTIONS (3)
  - Frustration tolerance decreased [Unknown]
  - Anger [Unknown]
  - Anger [Unknown]

NARRATIVE: CASE EVENT DATE: 20220528
